FAERS Safety Report 6098747-7 (Version None)
Quarter: 2009Q1

REPORT INFORMATION
  Report Type: 
  Country: None (occurrence: None)
  Receive Date: 20090302
  Receipt Date: 20090218
  Transmission Date: 20090719
  Serious: Yes (Death)
  Sender: FDA-Public Use
  Company Number: SG-PFIZER INC-2006056130

PATIENT

DRUGS (19)
  1. SUNITINIB MALATE [Suspect]
     Indication: GASTROINTESTINAL STROMAL TUMOUR
     Dosage: 25 MG, 1X/DAY
     Route: 048
     Dates: start: 20060404, end: 20060422
  2. CELEBREX [Concomitant]
     Route: 048
     Dates: start: 20040826, end: 20060421
  3. OMEPRAZOLE [Concomitant]
     Dosage: UNK
     Route: 048
     Dates: start: 20050203, end: 20050422
  4. RAMIPRIL [Concomitant]
     Route: 048
     Dates: start: 20050301, end: 20060421
  5. SANGOBION [Concomitant]
     Route: 048
     Dates: start: 20060401, end: 20060422
  6. ATENOLOL [Concomitant]
     Route: 048
     Dates: start: 20050412, end: 20060323
  7. DOMPERIDONE [Concomitant]
     Route: 048
     Dates: end: 20060419
  8. FRUSEMIDE [Concomitant]
     Route: 048
     Dates: start: 20060109, end: 20060415
  9. AZUNOL [Concomitant]
     Route: 061
     Dates: start: 20051117
  10. GENTAMYCIN SULFATE [Concomitant]
     Route: 061
     Dates: start: 20051117
  11. KETOPROFEN [Concomitant]
     Route: 048
  12. ISODINE [Concomitant]
     Route: 048
  13. MULTI-VITAMINS [Concomitant]
     Route: 048
     Dates: start: 20060218, end: 20060422
  14. ACETAMINOPHEN AND CODEINE PHOSPHATE [Concomitant]
     Route: 048
     Dates: start: 20060220
  15. DISFLATYL [Concomitant]
     Route: 048
     Dates: start: 20060117, end: 20060422
  16. LOXONIN [Concomitant]
     Route: 048
     Dates: start: 20060325, end: 20060409
  17. VOLTAREN [Concomitant]
     Route: 048
     Dates: start: 20060326, end: 20060422
  18. CODEINE PHOSPHATE [Concomitant]
     Route: 048
     Dates: start: 20060328, end: 20060422
  19. FERROUS FUMARATE [Concomitant]
     Route: 048
     Dates: start: 20060329

REACTIONS (5)
  - ANAEMIA [None]
  - DISEASE PROGRESSION [None]
  - DISSEMINATED INTRAVASCULAR COAGULATION [None]
  - GASTROINTESTINAL STROMAL TUMOUR [None]
  - SHOCK HAEMORRHAGIC [None]
